FAERS Safety Report 8285119 (Version 11)
Quarter: 2013Q1

REPORT INFORMATION
  Report Type: Spontaneous
  Country: US (occurrence: US)
  Receive Date: 20111212
  Receipt Date: 20121106
  Transmission Date: 20140127
  Serious: Yes (Hospitalization, Disabling, Other)
  Sender: FDA-Public Use
  Company Number: US-009507513-1112USA01089

PATIENT
  Sex: 0

DRUGS (10)
  1. FOSAMAX [Suspect]
     Indication: OSTEOPOROSIS
     Dosage: 70 MG, UNK
     Route: 048
     Dates: start: 1995, end: 2005
  2. FOSAMAX [Suspect]
     Indication: OSTEOPENIA
     Dosage: 70 MG, QW
     Route: 048
  3. FOSAMAX [Suspect]
     Indication: OSTEOPOROSIS
     Dosage: 70 MG, UNK
     Route: 048
     Dates: start: 20100201, end: 20100521
  4. FOSAMAX [Suspect]
     Indication: OSTEOPENIA
  5. FOSAMAX D [Suspect]
     Indication: OSTEOPOROSIS
     Dosage: 70MG/2800
     Route: 048
     Dates: start: 20060424, end: 20100125
  6. FOSAMAX D [Suspect]
     Indication: OSTEOPENIA
  7. PRILOSEC [Concomitant]
     Route: 048
     Dates: start: 1998
  8. CALCIUM (UNSPECIFIED) [Concomitant]
     Dosage: 1200 MG, QD
     Dates: start: 2001
  9. VITAMIN D (UNSPECIFIED) [Concomitant]
     Dosage: 3000 U, QD
     Dates: start: 2001
  10. PREVACID [Concomitant]

REACTIONS (53)
  - Femur fracture [Recovering/Resolving]
  - Intramedullary rod insertion [Recovering/Resolving]
  - Low turnover osteopathy [Not Recovered/Not Resolved]
  - Drug intolerance [Unknown]
  - Fall [Unknown]
  - Hypotension [Unknown]
  - Fracture nonunion [Recovering/Resolving]
  - Medical device pain [Unknown]
  - Open reduction of fracture [Recovering/Resolving]
  - Musculoskeletal chest pain [Recovered/Resolved]
  - Medical device removal [Unknown]
  - Arthropathy [Unknown]
  - Vitamin D deficiency [Not Recovered/Not Resolved]
  - Asthma [Unknown]
  - Rib fracture [Unknown]
  - Hypertension [Unknown]
  - Tooth disorder [Unknown]
  - Seborrhoeic keratosis [Unknown]
  - Sciatica [Unknown]
  - Arthritis [Unknown]
  - Grief reaction [Unknown]
  - Insomnia [Unknown]
  - Meniscus injury [Unknown]
  - Drug intolerance [Unknown]
  - Fall [Unknown]
  - Radius fracture [Unknown]
  - Intervertebral disc protrusion [Unknown]
  - Stress [Unknown]
  - Ventricular extrasystoles [Recovered/Resolved]
  - Neuropathy peripheral [Unknown]
  - Cough [Unknown]
  - Adverse drug reaction [Unknown]
  - Flank pain [Unknown]
  - Benign renal neoplasm [Unknown]
  - Hypomagnesaemia [Recovering/Resolving]
  - Vitamin B12 deficiency [Unknown]
  - Weight increased [Unknown]
  - Forearm fracture [Unknown]
  - Dyspnoea [Unknown]
  - Diastolic dysfunction [Unknown]
  - Mitral valve incompetence [Unknown]
  - Mitral valve calcification [Unknown]
  - Aortic arteriosclerosis [Unknown]
  - Medical device complication [Unknown]
  - Muscle atrophy [Unknown]
  - Musculoskeletal discomfort [Unknown]
  - Dysphagia [Unknown]
  - Neck pain [Unknown]
  - Pain in extremity [Unknown]
  - Back pain [Unknown]
  - Gastritis [Unknown]
  - Dizziness [Recovered/Resolved]
  - Arthralgia [Unknown]
